FAERS Safety Report 9292102 (Version 1)
Quarter: 2013Q1

REPORT INFORMATION
  Report Type: Spontaneous
  Country: US (occurrence: None)
  Receive Date: 20121214
  Receipt Date: 20121214
  Transmission Date: 20140127
  Serious: Yes (Hospitalization)
  Sender: FDA-Public Use
  Company Number: 1111USA02691

PATIENT
  Age: 65 Year
  Sex: Male

DRUGS (8)
  1. JANUVIA [Suspect]
     Indication: TYPE 2 DIABETES MELLITUS
     Route: 048
  2. BYETTA [Suspect]
  3. MK-9378 [Suspect]
  4. SIMVASTATIN [Suspect]
  5. PRINIVIL [Suspect]
  6. TRICOR [Suspect]
  7. ASPIRIN (ASPIRIN) [Suspect]
  8. INSULIN (INSULIN) [Suspect]

REACTIONS (1)
  - Pancreatitis [None]
